FAERS Safety Report 12072132 (Version 1)
Quarter: 2016Q1

REPORT INFORMATION
  Report Type: Spontaneous
  Country: US (occurrence: None)
  Receive Date: 20160211
  Receipt Date: 20160211
  Transmission Date: 20160526
  Serious: Yes (Disabling, Other)
  Sender: FDA-Public Use
  Company Number: None

PATIENT
  Age: 43 Year
  Sex: Female
  Weight: 99.79 kg

DRUGS (5)
  1. OMEGA 3 [Concomitant]
     Active Substance: OMEGA-3 FATTY ACIDS
  2. CYMBALTA [Suspect]
     Active Substance: DULOXETINE HYDROCHLORIDE
     Indication: PAIN
     Route: 048
     Dates: start: 20151217, end: 20160210
  3. MULTIVITAMIN [Concomitant]
     Active Substance: VITAMINS
  4. PENICILLIN [Concomitant]
     Active Substance: PENICILLIN
  5. CYMBALTA [Suspect]
     Active Substance: DULOXETINE HYDROCHLORIDE
     Indication: DEPRESSION
     Route: 048
     Dates: start: 20151217, end: 20160210

REACTIONS (16)
  - Abdominal pain [None]
  - Diarrhoea [None]
  - Chest pain [None]
  - Dyspnoea [None]
  - Vision blurred [None]
  - Dizziness [None]
  - Tremor [None]
  - Palpitations [None]
  - Nausea [None]
  - Paraesthesia [None]
  - Presyncope [None]
  - Drug withdrawal syndrome [None]
  - Migraine [None]
  - Upper-airway cough syndrome [None]
  - Retching [None]
  - Nasal congestion [None]

NARRATIVE: CASE EVENT DATE: 20160205
